FAERS Safety Report 17528498 (Version 2)
Quarter: 2020Q3

REPORT INFORMATION
  Report Type: Spontaneous
  Country: US (occurrence: US)
  Receive Date: 20200311
  Receipt Date: 20200827
  Transmission Date: 20201102
  Serious: Yes (Other)
  Sender: FDA-Public Use
  Company Number: US-TEVA-2020-US-1199086

PATIENT
  Age: 75 Year
  Sex: Male

DRUGS (9)
  1. DESMOPRESSIN [Concomitant]
     Active Substance: DESMOPRESSIN
  2. FISH OIL [Concomitant]
     Active Substance: FISH OIL
  3. FOSAMAX [Concomitant]
     Active Substance: ALENDRONATE SODIUM
  4. KEFLEX [Concomitant]
     Active Substance: CEPHALEXIN
  5. COPAXONE [Suspect]
     Active Substance: GLATIRAMER ACETATE
     Indication: MULTIPLE SCLEROSIS
     Dosage: COPAXONE 40MG/ML THRICE A WEEK
     Route: 058
     Dates: start: 20150617
  6. MAGNESIUM [Concomitant]
     Active Substance: MAGNESIUM
  7. VITAMIN D3 [Concomitant]
     Active Substance: CHOLECALCIFEROL
  8. CALCIUM [Concomitant]
     Active Substance: CALCIUM
  9. BIOTIN [Concomitant]
     Active Substance: BIOTIN

REACTIONS (3)
  - Wheelchair user [Unknown]
  - Fall [Not Recovered/Not Resolved]
  - Cellulitis [Not Recovered/Not Resolved]
